FAERS Safety Report 19171593 (Version 2)
Quarter: 2021Q2

REPORT INFORMATION
  Report Type: Report from Study
  Country: None (occurrence: US)
  Receive Date: 20210423
  Receipt Date: 20210430
  Transmission Date: 20210717
  Serious: Yes (Hospitalization, Other)
  Sender: FDA-Public Use
  Company Number: US-ABBVIE-21K-163-3837168-00

PATIENT
  Age: 79 Year
  Sex: Female

DRUGS (3)
  1. HUMIRA [Suspect]
     Active Substance: ADALIMUMAB
     Indication: PSORIASIS
     Route: 058
     Dates: start: 2012, end: 2021
  2. HUMIRA [Suspect]
     Active Substance: ADALIMUMAB
     Indication: RHEUMATOID ARTHRITIS
  3. HUMIRA [Suspect]
     Active Substance: ADALIMUMAB
     Indication: PSORIATIC ARTHROPATHY

REACTIONS (10)
  - Dental restoration failure [Unknown]
  - Drug ineffective [Unknown]
  - Near death experience [Unknown]
  - Back pain [Recovering/Resolving]
  - Tooth loss [Unknown]
  - Back injury [Recovering/Resolving]
  - Memory impairment [Unknown]
  - Illness [Recovering/Resolving]
  - Cystitis [Unknown]
  - Spinal fracture [Recovering/Resolving]

NARRATIVE: CASE EVENT DATE: 202104
